FAERS Safety Report 16764506 (Version 1)
Quarter: 2019Q3

REPORT INFORMATION
  Report Type: Report from Study
  Country: ES (occurrence: ES)
  Receive Date: 20190902
  Receipt Date: 20190902
  Transmission Date: 20191005
  Serious: Yes (Other)
  Sender: FDA-Public Use
  Company Number: ES-ROCHE-2388774

PATIENT
  Age: 66 Year
  Sex: Female
  Weight: 64 kg

DRUGS (11)
  1. DEXCLORFENIRAMINA [Concomitant]
     Active Substance: DEXCHLORPHENIRAMINE
     Indication: NAUSEA
     Route: 065
     Dates: start: 20190716, end: 20190716
  2. DEXAMETHASONE. [Concomitant]
     Active Substance: DEXAMETHASONE
     Route: 042
     Dates: start: 20190430, end: 20190723
  3. PACLITAXEL. [Suspect]
     Active Substance: PACLITAXEL
     Indication: HER-2 POSITIVE BREAST CANCER
     Dosage: FOR 12 CONTINUOUS WEEKS?DATE OF MOST RECENT DOSE OF PACLITAXEL (132 MG) PRIOR TO AE ONSET;23/JUL/201
     Route: 042
     Dates: start: 20190702
  4. PERTUZUMAB. [Suspect]
     Active Substance: PERTUZUMAB
     Indication: HER-2 POSITIVE BREAST CANCER
     Dosage: 420 MG AS MAINTENANCE DOSE ?FOR 4 CYCLE?DATE OF MOST RECENT DOSE OF PERTUZUMAB (420 MG) PRIOR TO AE
     Route: 042
     Dates: start: 20190702
  5. DIAZEPAM. [Concomitant]
     Active Substance: DIAZEPAM
     Indication: INSOMNIA
     Route: 048
     Dates: start: 201904
  6. CIPROFLOXACIN. [Concomitant]
     Active Substance: CIPROFLOXACIN
     Indication: URINARY TRACT INFECTION
     Route: 065
     Dates: start: 20190730, end: 20190802
  7. TRASTUZUMAB. [Suspect]
     Active Substance: TRASTUZUMAB
     Indication: HER-2 POSITIVE BREAST CANCER
     Dosage: 6 MG/KG AS MAINTENANCE DOSE?4 CYCLE?DATE OF MOST RECENT DOSE OF TRASTUZUMAB (396 MG) PRIOR TO AE ONS
     Route: 042
     Dates: start: 20190702
  8. CYCLOPHOSPHAMIDE. [Suspect]
     Active Substance: CYCLOPHOSPHAMIDE
     Indication: HER-2 POSITIVE BREAST CANCER
     Dosage: DATE OF MOST RECENT DOSE OF CYCLOPHOSPHAMIDE (990 MG) PRIOR TO AE ONSET: 11/JUN/2019.
     Route: 042
     Dates: start: 20190430
  9. DEXCLORFENIRAMINA [Concomitant]
     Active Substance: DEXCHLORPHENIRAMINE
     Route: 065
     Dates: start: 20190723, end: 20190723
  10. PLACEBO [Suspect]
     Active Substance: UNSPECIFIED INGREDIENT
     Indication: HER-2 POSITIVE BREAST CANCER
     Dosage: FOR 4 CYCLES?DATE OF MOST RECENT DOSE OF BLINDED ATEZOLIZUMAB PRIOR TO AE ONSET: 23/JUL/2019
     Route: 042
     Dates: start: 20190430
  11. DOXORUBICIN [Suspect]
     Active Substance: DOXORUBICIN
     Indication: HER-2 POSITIVE BREAST CANCER
     Dosage: DATE OF MOST RECENT DOSE OF DOXORUBICIN (99 MG) PRIOR TO AE ONSET 11/JUN/2019
     Route: 042
     Dates: start: 20190430

REACTIONS (1)
  - Mitral valve incompetence [Not Recovered/Not Resolved]

NARRATIVE: CASE EVENT DATE: 20190807
